FAERS Safety Report 14732783 (Version 11)
Quarter: 2021Q4

REPORT INFORMATION
  Report Type: Report from Study
  Country: AU (occurrence: AU)
  Receive Date: 20180409
  Receipt Date: 20211006
  Transmission Date: 20220304
  Serious: Yes (Death, Hospitalization)
  Sender: FDA-Public Use
  Company Number: AU-ROCHE-2101574

PATIENT
  Age: 70 Year
  Sex: Male
  Weight: 84 kg

DRUGS (17)
  1. ATEZOLIZUMAB [Suspect]
     Active Substance: ATEZOLIZUMAB
     Indication: Malignant melanoma
     Dosage: DATE OF MOST RECENT DOSE OF BLINDED ATEZOLIZUMAB PRIOR TO SECOND EPISODE OF ATRIAL FIBRILLATION ONSE
     Route: 041
     Dates: start: 20171227
  2. VEMURAFENIB [Suspect]
     Active Substance: VEMURAFENIB
     Indication: Malignant melanoma
     Dosage: DATE OF MOST RECENT DOSE (3 TABLETS) OF VEMURAFENIB PRIOR TO SECOND EPISODE OF ATRIAL FIBRILLATION O
     Route: 048
     Dates: start: 20171127
  3. COBIMETINIB [Suspect]
     Active Substance: COBIMETINIB
     Indication: Malignant melanoma
     Dosage: DOSE OF LAST COBIMETINIB  60 MG ADMINISTERED PRIOR TO SAE ONSET ON 16/JAN/2018 OF FIRST EPISODE OF A
     Route: 048
     Dates: start: 20171127
  4. KRILL OIL [Concomitant]
     Active Substance: DIETARY SUPPLEMENT\KRILL OIL
     Route: 048
  5. METOPROLOL [Concomitant]
     Active Substance: METOPROLOL
     Indication: Atrial fibrillation
     Route: 048
     Dates: start: 20180202, end: 20180402
  6. METOPROLOL [Concomitant]
     Active Substance: METOPROLOL
     Route: 048
     Dates: start: 20180403, end: 20180412
  7. METOPROLOL [Concomitant]
     Active Substance: METOPROLOL
     Route: 048
  8. APIXABAN [Concomitant]
     Active Substance: APIXABAN
     Indication: Atrial fibrillation
     Route: 048
     Dates: start: 20180203
  9. APIXABAN [Concomitant]
     Active Substance: APIXABAN
     Route: 048
  10. IBUPROFEN [Concomitant]
     Active Substance: IBUPROFEN
     Indication: Headache
     Route: 048
     Dates: start: 20180314, end: 20180314
  11. IBUPROFEN [Concomitant]
     Active Substance: IBUPROFEN
     Indication: Myalgia
     Route: 048
     Dates: start: 20171227
  12. PIPERACILLIN SODIUM\TAZOBACTAM SODIUM [Concomitant]
     Active Substance: PIPERACILLIN SODIUM\TAZOBACTAM SODIUM
     Indication: Sepsis
     Route: 042
     Dates: start: 20180403, end: 20180403
  13. LORATADINE [Concomitant]
     Active Substance: LORATADINE
     Indication: Infusion related reaction
     Route: 048
     Dates: start: 20180402
  14. HYDROCORTISONE [Concomitant]
     Active Substance: HYDROCORTISONE
     Indication: Infusion related reaction
     Route: 042
     Dates: start: 20180319, end: 20180319
  15. KEFLEX [Concomitant]
     Active Substance: CEPHALEXIN
     Indication: Wound infection
     Route: 048
     Dates: start: 20171204, end: 20171211
  16. DIAZEPAM [Concomitant]
     Active Substance: DIAZEPAM
     Dates: start: 20180202, end: 20180202
  17. CALCIUM CHLORIDE\POTASSIUM CHLORIDE\SODIUM CHLORIDE\SODIUM LACTATE [Concomitant]
     Active Substance: CALCIUM CHLORIDE\POTASSIUM CHLORIDE\SODIUM CHLORIDE\SODIUM LACTATE
     Indication: Diarrhoea

REACTIONS (2)
  - Atrial fibrillation [Recovered/Resolved]
  - Ejection fraction decreased [Recovered/Resolved]

NARRATIVE: CASE EVENT DATE: 20171221
